FAERS Safety Report 4578832-9 (Version None)
Quarter: 2005Q1

REPORT INFORMATION
  Report Type: 
  Country: None (occurrence: None)
  Receive Date: 20050211
  Receipt Date: 20041223
  Transmission Date: 20050727
  Serious: Yes (Death, Other)
  Sender: FDA-Public Use
  Company Number: US-BRISTOL-MYERS SQUIBB COMPANY-12806832

PATIENT
  Age: 88 Year
  Sex: Male

DRUGS (15)
  1. MEGACE [Suspect]
     Indication: INCREASED APPETITE
     Route: 048
     Dates: start: 20040908, end: 20041201
  2. PREVACID [Concomitant]
  3. ALPRAZOLAM [Concomitant]
  4. ATENOLOL [Concomitant]
  5. PLETAL [Concomitant]
  6. KLOR-CON [Concomitant]
  7. LASIX [Concomitant]
  8. PEPCID [Concomitant]
  9. DITROPAN XL [Concomitant]
  10. LEVOTHROID [Concomitant]
  11. CYTOXAN [Concomitant]
     Indication: LYMPHOMA
     Dates: end: 20041018
  12. VINCRISTINE [Concomitant]
     Indication: LYMPHOMA
     Dates: end: 20041018
  13. LUPRON [Concomitant]
  14. RITUXAN [Concomitant]
     Indication: LYMPHOMA
     Dates: end: 20041018
  15. NEULASTA [Concomitant]

REACTIONS (2)
  - LYMPHOMA [None]
  - MALIGNANT NEOPLASM PROGRESSION [None]
